FAERS Safety Report 19104277 (Version 1)
Quarter: 2021Q2

REPORT INFORMATION
  Report Type: Other
  Country: FR (occurrence: FR)
  Receive Date: 20210408
  Receipt Date: 20210408
  Transmission Date: 20210717
  Serious: Yes (Other)
  Sender: FDA-Public Use
  Company Number: FR-CELLTRION INC.-2021FR004388

PATIENT

DRUGS (3)
  1. POLATUZUMAB VEDOTIN. [Suspect]
     Active Substance: POLATUZUMAB VEDOTIN
     Indication: DIFFUSE LARGE B-CELL LYMPHOMA
     Dosage: 1.8 MG/KG (SUBSEQUENT CYCLES RECEIVE ON: 23/JUL/2020, 13/AUG/2020, 02/SEP/2020, 30/SEP/2020 AND 28/O
     Route: 042
     Dates: start: 20200703
  2. RITUXIMAB (UNKNOWN) [Suspect]
     Active Substance: RITUXIMAB
     Indication: DIFFUSE LARGE B-CELL LYMPHOMA
     Dosage: 375 MG/M2 (SUBSEQUENT CYCLES RECEIVE ON: 23/JUL/2020, 13/AUG/2020, 02/SEP/2020, 30/SEP/2020 AND 28/O
     Route: 042
     Dates: start: 20200625
  3. BENDAMUSTINE [Suspect]
     Active Substance: BENDAMUSTINE
     Indication: DIFFUSE LARGE B-CELL LYMPHOMA
     Dosage: 90 MG/M2 (SUBSEQUENT CYCLES RECEIVE ON: 23/JUL/2020, 13/AUG/2020, 02/SEP/2020, 30/SEP/2020 AND 28/OC
     Route: 042
     Dates: start: 20200625

REACTIONS (4)
  - Treatment noncompliance [Unknown]
  - Intentional product use issue [Unknown]
  - Neuropathy peripheral [Unknown]
  - Off label use [Unknown]
